FAERS Safety Report 23772590 (Version 2)
Quarter: 2024Q3

REPORT INFORMATION
  Report Type: Spontaneous
  Country: BR (occurrence: BR)
  Receive Date: 20240423
  Receipt Date: 20240809
  Transmission Date: 20241016
  Serious: Yes (Other)
  Sender: SANDOZ
  Company Number: BR-002147023-NVSC2022BR247474

PATIENT
  Age: 34 Year
  Sex: Female

DRUGS (5)
  1. ANASTROZOLE [Suspect]
     Active Substance: ANASTROZOLE
     Indication: Product used for unknown indication
     Dosage: UNK
     Route: 065
  2. KISQALI [Suspect]
     Active Substance: RIBOCICLIB
     Indication: Breast cancer
     Dosage: 3 DOSAGE FORM, QD
     Route: 065
     Dates: start: 20220930
  3. KISQALI [Suspect]
     Active Substance: RIBOCICLIB
     Dosage: UNK
     Route: 065
     Dates: start: 20221018
  4. ZOLEDRONIC ACID [Suspect]
     Active Substance: ZOLEDRONIC ACID
     Indication: Blood calcium abnormal
     Dosage: UNK, Q3MO (INFUSION)
     Route: 042
     Dates: start: 202211
  5. ZOLEDRONIC ACID [Suspect]
     Active Substance: ZOLEDRONIC ACID
     Dosage: UNK, Q3MO (INFUSION)
     Route: 040
     Dates: start: 202211

REACTIONS (34)
  - Cervix carcinoma [Unknown]
  - Second primary malignancy [Unknown]
  - Discomfort [Recovered/Resolved]
  - Anxiety [Not Recovered/Not Resolved]
  - Mental disorder [Not Recovered/Not Resolved]
  - Depressed mood [Not Recovered/Not Resolved]
  - Pain in extremity [Not Recovered/Not Resolved]
  - Tearfulness [Not Recovered/Not Resolved]
  - Headache [Unknown]
  - Oropharyngeal pain [Recovering/Resolving]
  - Back pain [Not Recovered/Not Resolved]
  - Throat lesion [Unknown]
  - Weight decreased [Unknown]
  - Feeding disorder [Unknown]
  - Movement disorder [Recovered/Resolved]
  - Influenza [Recovered/Resolved]
  - Arthralgia [Recovered/Resolved]
  - Malaise [Unknown]
  - Sensitive skin [Not Recovered/Not Resolved]
  - Contusion [Unknown]
  - Pain [Unknown]
  - Skin wrinkling [Unknown]
  - Skin discolouration [Unknown]
  - Scar [Unknown]
  - Decreased immune responsiveness [Unknown]
  - Migraine [Recovering/Resolving]
  - Skin injury [Unknown]
  - Vomiting [Recovered/Resolved]
  - Dyspnoea [Recovered/Resolved]
  - Pyrexia [Unknown]
  - Decreased appetite [Recovered/Resolved]
  - Nausea [Recovered/Resolved]
  - Drug ineffective [Unknown]
  - Inappropriate schedule of product administration [Unknown]

NARRATIVE: CASE EVENT DATE: 20220930
